FAERS Safety Report 12610151 (Version 1)
Quarter: 2016Q3

REPORT INFORMATION
  Report Type: Spontaneous
  Country: US (occurrence: None)
  Receive Date: 20160729
  Receipt Date: 20160729
  Transmission Date: 20161109
  Serious: Yes (Disabling, Other)
  Sender: FDA-Public Use
  Company Number: None

PATIENT
  Age: 5 Year
  Sex: Female
  Weight: 17.24 kg

DRUGS (15)
  1. ZANTAC [Concomitant]
     Active Substance: RANITIDINE HYDROCHLORIDE
  2. DIAZPAM [Concomitant]
  3. MELTONIN [Concomitant]
  4. FLONASE [Concomitant]
     Active Substance: FLUTICASONE PROPIONATE
  5. SINGULAIR [Concomitant]
     Active Substance: MONTELUKAST SODIUM
  6. ZYRTEC [Concomitant]
     Active Substance: CETIRIZINE HYDROCHLORIDE
  7. MIK-KEY BUTTON [Concomitant]
  8. GAS DROPS [Concomitant]
  9. BACLOFEN. [Suspect]
     Active Substance: BACLOFEN
  10. ALBUTEROL NEBULIZER [Concomitant]
     Active Substance: ALBUTEROL
  11. PUMLICORR [Concomitant]
  12. PROBIOTICS [Concomitant]
     Active Substance: PROBIOTICS NOS
  13. VITAMINS [Concomitant]
     Active Substance: VITAMINS
  14. CLARITIN [Concomitant]
     Active Substance: LORATADINE
  15. NUROTIN [Concomitant]

REACTIONS (3)
  - Procedural complication [None]
  - Bone disorder [None]
  - Respiratory depression [None]

NARRATIVE: CASE EVENT DATE: 20140501
